FAERS Safety Report 7994333-X (Version None)
Quarter: 2011Q4

REPORT INFORMATION
  Report Type: 
  Country: None (occurrence: None)
  Receive Date: 20111220
  Receipt Date: 20110112
  Transmission Date: 20120403
  Serious: No
  Sender: FDA-Public Use
  Company Number: US-GLAXOSMITHKLINE-A0905421A

PATIENT
  Age: 61 Year
  Sex: Female

DRUGS (5)
  1. SYNTHROID [Concomitant]
  2. GAVISCON [Concomitant]
  3. OMEPRAZOLE [Suspect]
     Indication: ILL-DEFINED DISORDER
     Dosage: 20MG PER DAY
  4. CALCITONIN SALMON [Concomitant]
  5. SORIATANE [Suspect]
     Indication: LICHEN PLANUS
     Dosage: 25MG PER DAY
     Route: 048
     Dates: start: 20100601

REACTIONS (3)
  - ERYTHEMA [None]
  - SKIN BURNING SENSATION [None]
  - DRUG INTERACTION [None]
